FAERS Safety Report 6344751-0 (Version None)
Quarter: 2009Q3

REPORT INFORMATION
  Report Type: 
  Country: None (occurrence: None)
  Receive Date: 20090904
  Receipt Date: 20090820
  Transmission Date: 20100115
  Serious: Yes (Death, Hospitalization)
  Sender: FDA-Public Use
  Company Number: 2008AL012231

PATIENT
  Age: 74 Year
  Sex: Male

DRUGS (22)
  1. DIGOXIN [Suspect]
     Indication: CARDIAC FAILURE CONGESTIVE
     Dosage: 0.125MG, PO
     Route: 048
     Dates: start: 20080101, end: 20080401
  2. COUMADIN [Concomitant]
  3. ASPIRIN [Concomitant]
  4. LIPITOR [Concomitant]
  5. CARVEDILOL [Concomitant]
  6. LASIX [Concomitant]
  7. MULTI-VITAMIN [Concomitant]
  8. RAMIPRIL [Concomitant]
  9. TERAZOSIN HCL [Concomitant]
  10. SPIRONOLACTONE [Concomitant]
  11. BACTROBAN [Concomitant]
  12. CHANTIX [Concomitant]
  13. CLINDAMYCIN [Concomitant]
  14. HYDROCODONE BITARTRATE AND ACETAMINOPHEN [Concomitant]
  15. AZITHROMYCIN [Concomitant]
  16. PROPOXYPHENE HCL CAP [Concomitant]
  17. FLOMAX [Concomitant]
  18. OXYCODONE HCL AND ACETAMINOPHEN [Concomitant]
  19. ADVAIR HFA [Concomitant]
  20. PREDNISONE TAB [Concomitant]
  21. WARFARIN SODIUM [Concomitant]
  22. LUNESTA [Concomitant]

REACTIONS (14)
  - ARTHRALGIA [None]
  - BRADYARRHYTHMIA [None]
  - BRADYCARDIA [None]
  - DECREASED APPETITE [None]
  - DYSPNOEA [None]
  - ECONOMIC PROBLEM [None]
  - EMOTIONAL DISORDER [None]
  - HYPOTENSION [None]
  - MULTIPLE INJURIES [None]
  - NAUSEA [None]
  - PAIN [None]
  - THERAPEUTIC AGENT TOXICITY [None]
  - THROMBOCYTOPENIA [None]
  - UNEVALUABLE EVENT [None]
